FAERS Safety Report 22661761 (Version 6)
Quarter: 2024Q4

REPORT INFORMATION
  Report Type: Spontaneous
  Country: US (occurrence: US)
  Receive Date: 20230630
  Receipt Date: 20241212
  Transmission Date: 20250115
  Serious: Yes (Other)
  Sender: PFIZER
  Company Number: US-PFIZER INC-PV202300113478

PATIENT
  Age: 79 Year
  Sex: Female
  Weight: 50.522 kg

DRUGS (2)
  1. IBRANCE [Suspect]
     Active Substance: PALBOCICLIB
     Indication: Breast cancer female
     Dosage: 14 DAYS ON 7 DAYS OFF
     Route: 048
  2. IBRANCE [Suspect]
     Active Substance: PALBOCICLIB
     Dosage: 75 MG TABLET TAKE ONCE DAILY 1-14 , 7 DAYS OFF/ON DAYS 1-14 OF EACH 21 DAY CYCLE
     Route: 048

REACTIONS (5)
  - Pulmonary oedema [Unknown]
  - Dementia [Unknown]
  - Feeling abnormal [Unknown]
  - Off label use [Unknown]
  - Product prescribing error [Unknown]
